FAERS Safety Report 13559936 (Version 2)
Quarter: 2018Q4

REPORT INFORMATION
  Report Type: Spontaneous
  Country: US (occurrence: US)
  Receive Date: 20170518
  Receipt Date: 20181122
  Transmission Date: 20190204
  Serious: Yes (Other)
  Sender: FDA-Public Use
  Company Number: US-ASTRAZENECA-2017SE51074

PATIENT
  Sex: Male

DRUGS (22)
  1. TRICOR [Concomitant]
     Active Substance: FENOFIBRATE
     Dosage: 145.0MG UNKNOWN
     Route: 048
  2. NEXIUM [Suspect]
     Active Substance: ESOMEPRAZOLE MAGNESIUM
     Indication: GASTROOESOPHAGEAL REFLUX DISEASE
     Dosage: 40.0MG UNKNOWN
     Route: 048
     Dates: start: 20150309
  3. GLYCOLAX [Concomitant]
     Active Substance: POLYETHYLENE GLYCOL 3350
     Dosage: TAKE 17 GRAM MIXED WITH 8 OZ. WATHER, JUICE, SODA, COFFEE OR TEA BY ORAL ROUTE ONCE DAILY.
     Route: 048
  4. BACLOFEN. [Concomitant]
     Active Substance: BACLOFEN
     Dosage: 10.0MG UNKNOWN
     Route: 048
     Dates: end: 20150309
  5. CELEXA [Concomitant]
     Active Substance: CITALOPRAM HYDROBROMIDE
     Dosage: 40.0MG UNKNOWN
     Route: 048
     Dates: end: 20150309
  6. LYRICA [Concomitant]
     Active Substance: PREGABALIN
     Dosage: 150.0MG UNKNOWN
     Route: 048
  7. TRAZODONE [Concomitant]
     Active Substance: TRAZODONE HYDROCHLORIDE
     Route: 048
  8. VALIUM [Concomitant]
     Active Substance: DIAZEPAM
     Dosage: 10.0MG UNKNOWN
     Route: 048
  9. COLACE [Concomitant]
     Active Substance: DOCUSATE SODIUM
     Dosage: 100.0MG UNKNOWN
     Route: 048
  10. NIZORAL [Concomitant]
     Active Substance: KETOCONAZOLE
     Dosage: 2% TOPICAL SHAMPOO
  11. PROSCAR [Concomitant]
     Active Substance: FINASTERIDE
     Route: 048
     Dates: start: 20150309
  12. LIPITOR [Concomitant]
     Active Substance: ATORVASTATIN CALCIUM
  13. OXYCONTIN [Concomitant]
     Active Substance: OXYCODONE HYDROCHLORIDE
     Route: 048
     Dates: start: 20150309
  14. ZANAFLEX [Concomitant]
     Active Substance: TIZANIDINE HYDROCHLORIDE
     Route: 048
  15. ALOE VERA [Concomitant]
     Active Substance: ALOE VERA LEAF
     Dosage: APPLY TO AFFECTED AREA (2%)
     Route: 061
  16. NEXIUM [Suspect]
     Active Substance: ESOMEPRAZOLE MAGNESIUM
     Indication: GASTROOESOPHAGEAL REFLUX DISEASE
     Route: 048
     Dates: start: 2007, end: 2015
  17. PROSCAR [Concomitant]
     Active Substance: FINASTERIDE
     Route: 048
     Dates: start: 20160513
  18. ZOLOFT [Concomitant]
     Active Substance: SERTRALINE HYDROCHLORIDE
     Route: 048
  19. CIPRO [Concomitant]
     Active Substance: CIPROFLOXACIN HYDROCHLORIDE
     Dosage: 250.0MG UNKNOWN
     Route: 048
     Dates: start: 20151102, end: 20160309
  20. CIPRO [Concomitant]
     Active Substance: CIPROFLOXACIN HYDROCHLORIDE
     Dosage: UNKNOWN
     Route: 048
     Dates: start: 20171023
  21. SENNA [Concomitant]
     Active Substance: SENNA LEAF\SENNOSIDES\SENNOSIDES A AND B
     Dosage: 8.6MG UNKNOWN
     Route: 048
  22. SINEMET [Concomitant]
     Active Substance: CARBIDOPA\LEVODOPA
     Dosage: 25-100 MG
     Route: 048

REACTIONS (1)
  - Chronic kidney disease [Unknown]
